FAERS Safety Report 9017933 (Version 1)
Quarter: 2013Q1

REPORT INFORMATION
  Report Type: Spontaneous
  Country: US (occurrence: US)
  Receive Date: 20130118
  Receipt Date: 20130118
  Transmission Date: 20140127
  Serious: No
  Sender: FDA-Public Use
  Company Number: US-BIOGENIDEC-2012BI045318

PATIENT
  Age: 36 Year
  Sex: Male

DRUGS (5)
  1. AVONEX [Suspect]
     Indication: MULTIPLE SCLEROSIS
     Route: 030
     Dates: start: 2010, end: 20110301
  2. AVONEX [Suspect]
     Indication: MULTIPLE SCLEROSIS
     Route: 030
     Dates: start: 20121107
  3. COPAXONE [Concomitant]
  4. KEPPRA [Concomitant]
  5. METOPROLOL [Concomitant]
     Indication: HYPERTENSION

REACTIONS (3)
  - Fear [Not Recovered/Not Resolved]
  - Agitation [Not Recovered/Not Resolved]
  - Influenza like illness [Recovered/Resolved]
